FAERS Safety Report 13081955 (Version 2)
Quarter: 2018Q3

REPORT INFORMATION
  Report Type: Spontaneous
  Country: GB (occurrence: GB)
  Receive Date: 20170103
  Receipt Date: 20180827
  Transmission Date: 20181010
  Serious: Yes (Hospitalization)
  Sender: FDA-Public Use
  Company Number: GB-BAYER-2016-243514

PATIENT
  Age: 88 Year
  Sex: Male
  Weight: 59 kg

DRUGS (5)
  1. SERTRALINE [Concomitant]
     Active Substance: SERTRALINE HYDROCHLORIDE
  2. ACETYLSALICYLIC ACID({=100 MG) [Suspect]
     Active Substance: ASPIRIN
     Indication: CARDIOVASCULAR EVENT PROPHYLAXIS
     Dosage: 75 MG, QD
     Route: 048
     Dates: start: 20161212
  3. BISOPROLOL [Concomitant]
     Active Substance: BISOPROLOL
  4. LANSOPRAZOLE. [Concomitant]
     Active Substance: LANSOPRAZOLE
  5. SIMVASTATIN. [Concomitant]
     Active Substance: SIMVASTATIN

REACTIONS (6)
  - Helicobacter infection [Unknown]
  - Hiatus hernia [Unknown]
  - Faeces discoloured [Unknown]
  - Gastritis [Recovering/Resolving]
  - Diarrhoea [Unknown]
  - Nausea [Unknown]
